FAERS Safety Report 7693245-9 (Version None)
Quarter: 2011Q3

REPORT INFORMATION
  Report Type: 
  Country: None (occurrence: None)
  Receive Date: 20110819
  Receipt Date: 20110810
  Transmission Date: 20111222
  Serious: Yes (Hospitalization)
  Sender: FDA-Public Use
  Company Number: JP-JNJFOC-20110711756

PATIENT
  Sex: Female

DRUGS (6)
  1. NORVASC [Concomitant]
     Indication: HYPERTENSION
     Route: 048
     Dates: start: 20090919
  2. LIPITOR [Concomitant]
     Indication: HYPERLIPIDAEMIA
     Route: 048
     Dates: start: 20100904
  3. RABEPRAZOLE SODIUM [Concomitant]
     Indication: GASTROOESOPHAGEAL REFLUX DISEASE
     Route: 048
     Dates: start: 20090919
  4. PLETAL [Concomitant]
     Indication: INFARCTION
     Route: 048
     Dates: start: 20100821
  5. LEVOFLOXACIN [Suspect]
     Indication: CELLULITIS
     Route: 048
     Dates: start: 20110713, end: 20110713
  6. ARICEPT [Concomitant]
     Indication: DEMENTIA
     Route: 048
     Dates: start: 20090919

REACTIONS (2)
  - LOSS OF CONSCIOUSNESS [None]
  - CONVULSION [None]
